FAERS Safety Report 13079753 (Version 3)
Quarter: 2020Q4

REPORT INFORMATION
  Report Type: Spontaneous
  Country: CN (occurrence: CN)
  Receive Date: 20170103
  Receipt Date: 20201016
  Transmission Date: 20210113
  Serious: Yes (Other)
  Sender: FDA-Public Use
  Company Number: CN-TAKEDA-2016MPI011072

PATIENT
  Age: 63 Year
  Sex: Female

DRUGS (12)
  1. VINCRISTINE [Suspect]
     Active Substance: VINCRISTINE
     Indication: ANGIOIMMUNOBLASTIC T-CELL LYMPHOMA
     Dosage: 2 MILLIGRAM
     Route: 065
  2. VELCADE [Suspect]
     Active Substance: BORTEZOMIB
     Dosage: 2.4 MILLIGRAM
     Route: 065
     Dates: start: 20130911
  3. DEXAMETHASONE. [Suspect]
     Active Substance: DEXAMETHASONE
     Dosage: 20 MILLIGRAM
     Route: 065
     Dates: start: 20130911
  4. CYCLOPHOSPHAMIDE. [Suspect]
     Active Substance: CYCLOPHOSPHAMIDE
     Indication: ANGIOIMMUNOBLASTIC T-CELL LYMPHOMA
     Dosage: 400 MILLIGRAM, BID
     Route: 065
  5. ADRIAMYCIN [Suspect]
     Active Substance: DOXORUBICIN HYDROCHLORIDE
     Indication: ANGIOIMMUNOBLASTIC T-CELL LYMPHOMA
     Dosage: 60 MILLIGRAM
     Route: 065
  6. IMIPENEM [Concomitant]
     Active Substance: IMIPENEM
     Dosage: UNK
     Route: 065
     Dates: start: 2013, end: 2013
  7. FUROSEMIDE. [Concomitant]
     Active Substance: FUROSEMIDE
     Dosage: 20 MILLIGRAM
     Route: 042
     Dates: start: 2013, end: 2013
  8. VELCADE [Suspect]
     Active Substance: BORTEZOMIB
     Dosage: 2.4 MILLIGRAM
     Route: 065
     Dates: start: 20130821
  9. CASPOFUNGIN [Concomitant]
     Active Substance: CASPOFUNGIN
     Dosage: UNK
     Route: 065
     Dates: start: 2013, end: 2013
  10. VELCADE [Suspect]
     Active Substance: BORTEZOMIB
     Indication: ANGIOIMMUNOBLASTIC T-CELL LYMPHOMA
     Dosage: 2.4 MILLIGRAM
     Route: 065
  11. DEXAMETHASONE. [Suspect]
     Active Substance: DEXAMETHASONE
     Indication: ANGIOIMMUNOBLASTIC T-CELL LYMPHOMA
     Dosage: 40 MILLIGRAM
     Route: 065
  12. DEXAMETHASONE. [Suspect]
     Active Substance: DEXAMETHASONE
     Dosage: 20 MILLIGRAM
     Route: 065
     Dates: start: 20130821

REACTIONS (5)
  - Myelosuppression [Unknown]
  - Off label use [Unknown]
  - Rash pruritic [Unknown]
  - Infection [Unknown]
  - Product use in unapproved indication [Unknown]

NARRATIVE: CASE EVENT DATE: 2013
